FAERS Safety Report 12313132 (Version 1)
Quarter: 2016Q2

REPORT INFORMATION
  Report Type: Report from Study
  Country: NL (occurrence: NL)
  Receive Date: 20160428
  Receipt Date: 20160428
  Transmission Date: 20160815
  Serious: Yes (Other)
  Sender: FDA-Public Use
  Company Number: NL-AMGEN-NLDSL2016053165

PATIENT
  Age: 52 Year
  Sex: Female

DRUGS (1)
  1. XGEVA [Suspect]
     Active Substance: DENOSUMAB
     Indication: PROPHYLAXIS
     Dosage: 1.7 ML (120 MG), Q4WK
     Route: 058

REACTIONS (1)
  - Abscess jaw [Not Recovered/Not Resolved]

NARRATIVE: CASE EVENT DATE: 2016
